FAERS Safety Report 10190678 (Version 2)
Quarter: 2014Q2

REPORT INFORMATION
  Report Type: Spontaneous
  Country: BR (occurrence: BR)
  Receive Date: 20140523
  Receipt Date: 20140613
  Transmission Date: 20141212
  Serious: Yes (Death, Hospitalization)
  Sender: FDA-Public Use
  Company Number: BR-BIOGENIDEC-2014BI047046

PATIENT
  Age: 51 Year
  Sex: Female

DRUGS (1)
  1. AVONEX [Suspect]
     Indication: MULTIPLE SCLEROSIS
     Route: 030
     Dates: start: 20130926, end: 20140101

REACTIONS (6)
  - Kidney infection [Fatal]
  - Multi-organ failure [Fatal]
  - Urinary tract infection [Unknown]
  - Coma [Unknown]
  - Convulsion [Unknown]
  - Depression [Unknown]
